FAERS Safety Report 11350522 (Version 1)
Quarter: 2015Q3

REPORT INFORMATION
  Report Type: Spontaneous
  Country: FR (occurrence: FR)
  Receive Date: 20150807
  Receipt Date: 20150807
  Transmission Date: 20151125
  Serious: Yes (Hospitalization)
  Sender: FDA-Public Use
  Company Number: FR-ELI_LILLY_AND_COMPANY-FR201507009117

PATIENT
  Age: 37 Year
  Sex: Female

DRUGS (2)
  1. CYMBALTA [Suspect]
     Active Substance: DULOXETINE HYDROCHLORIDE
     Indication: DEPRESSION
     Dosage: UNK, UNKNOWN
     Route: 065
     Dates: start: 201309, end: 20150710
  2. EPITOMAX [Suspect]
     Active Substance: TOPIRAMATE
     Indication: DEPRESSION
     Dosage: 75 MG, QD
     Route: 048
     Dates: start: 201403

REACTIONS (2)
  - Agranulocytosis [Not Recovered/Not Resolved]
  - Cough [Unknown]

NARRATIVE: CASE EVENT DATE: 20150705
